FAERS Safety Report 9465637 (Version 2)
Quarter: 2013Q4

REPORT INFORMATION
  Report Type: Spontaneous
  Country: CA (occurrence: CA)
  Receive Date: 20130820
  Receipt Date: 20131009
  Transmission Date: 20140711
  Serious: Yes (Other)
  Sender: FDA-Public Use
  Company Number: CA-SANOFI-AVENTIS-2013SA081664

PATIENT
  Age: 53 Year
  Sex: Female
  Weight: 77 kg

DRUGS (2)
  1. LANTUS [Suspect]
     Indication: PRODUCT USED FOR UNKNOWN INDICATION
     Route: 051
  2. LEVEMIR INSULIN [Concomitant]

REACTIONS (2)
  - Alopecia [Unknown]
  - Hair disorder [Unknown]
